FAERS Safety Report 6750458-8 (Version None)
Quarter: 2010Q2

REPORT INFORMATION
  Report Type: 
  Country: None (occurrence: None)
  Receive Date: 20100601
  Receipt Date: 20100519
  Transmission Date: 20101027
  Serious: Yes (Hospitalization)
  Sender: FDA-Public Use
  Company Number: SE-ELI_LILLY_AND_COMPANY-SE201005005419

PATIENT
  Sex: Male
  Weight: 84 kg

DRUGS (9)
  1. ZYPREXA [Suspect]
     Indication: MANIA
     Dosage: 5 MG, UNK
     Dates: start: 20100101, end: 20100101
  2. ZYPREXA [Suspect]
     Dosage: 10 MG, DAILY (1/D)
     Dates: start: 20100511, end: 20100511
  3. ZYPREXA [Suspect]
     Dosage: 20 MG, DAILY (1/D)
     Dates: start: 20100512, end: 20100518
  4. LYRICA [Concomitant]
     Indication: AFFECTIVE DISORDER
     Dosage: 75 MG, DAILY (1/D)
     Dates: start: 20091201
  5. RISPERDAL [Concomitant]
     Indication: AFFECTIVE DISORDER
  6. LITHIUM [Concomitant]
     Indication: AFFECTIVE DISORDER
     Dosage: 42 MG, EVERY 4 HRS
  7. LITHIUM [Concomitant]
     Dosage: 9 D/F, EACH MORNING
     Dates: start: 20100101
  8. ZOPICLON [Concomitant]
     Indication: SLEEP DISORDER
     Dosage: UNK, AS NEEDED
     Dates: start: 20100511
  9. FLUNITRAZEPAM [Concomitant]
     Indication: SLEEP DISORDER
     Dosage: 1 MG, DAILY (1/D)
     Dates: start: 20100511

REACTIONS (4)
  - CONFUSIONAL STATE [None]
  - MANIA [None]
  - MICTURITION URGENCY [None]
  - URINARY INCONTINENCE [None]
